FAERS Safety Report 6827324-2 (Version None)
Quarter: 2010Q3

REPORT INFORMATION
  Report Type: 
  Country: None (occurrence: None)
  Receive Date: 20100709
  Receipt Date: 20070110
  Transmission Date: 20110219
  Serious: No
  Sender: FDA-Public Use
  Company Number: US-PFIZER INC-2007003927

PATIENT
  Age: 53 Year
  Sex: Male
  Weight: 102.06 kg

DRUGS (5)
  1. CHANTIX [Suspect]
     Indication: SMOKING CESSATION THERAPY
  2. VYTORIN [Interacting]
     Dates: start: 20070101
  3. HYDROCHLOROTHIAZIDE [Concomitant]
  4. LISINOPRIL [Concomitant]
  5. ZOCOR [Concomitant]

REACTIONS (6)
  - BLOOD PRESSURE INCREASED [None]
  - CONSTIPATION [None]
  - DISTURBANCE IN ATTENTION [None]
  - DRUG INTERACTION [None]
  - FLATULENCE [None]
  - SLEEP DISORDER [None]
